FAERS Safety Report 7072779-4 (Version None)
Quarter: 2010Q4

REPORT INFORMATION
  Report Type: 
  Country: None (occurrence: None)
  Receive Date: 20101029
  Receipt Date: 20100413
  Transmission Date: 20110411
  Serious: No
  Sender: FDA-Public Use
  Company Number: A0849983A

PATIENT
  Age: 9 Year
  Sex: Male
  Weight: 55 kg

DRUGS (3)
  1. ADVAIR DISKUS 100/50 [Suspect]
     Indication: ASTHMA
     Route: 065
     Dates: start: 20050101
  2. CONCERTA [Suspect]
     Route: 065
  3. CLONIDINE [Concomitant]
     Indication: ATTENTION DEFICIT/HYPERACTIVITY DISORDER
     Route: 065
     Dates: start: 20090801

REACTIONS (1)
  - ABNORMAL BEHAVIOUR [None]
